FAERS Safety Report 11269675 (Version 1)
Quarter: 2015Q3

REPORT INFORMATION
  Report Type: Spontaneous
  Country: US (occurrence: US)
  Receive Date: 20150714
  Receipt Date: 20150714
  Transmission Date: 20151125
  Serious: Yes (Hospitalization, Other)
  Sender: FDA-Public Use
  Company Number: US-AMGEN-USASP2015067346

PATIENT
  Age: 77 Year
  Sex: Female

DRUGS (2)
  1. ENBREL [Suspect]
     Active Substance: ETANERCEPT
     Indication: PSORIASIS
     Dosage: 50 MG, 2 TIMES/WK
     Route: 065
     Dates: start: 20140731
  2. ENBREL [Suspect]
     Active Substance: ETANERCEPT
     Indication: PSORIATIC ARTHROPATHY

REACTIONS (10)
  - Psoriasis [Not Recovered/Not Resolved]
  - Wound secretion [Recovered/Resolved]
  - Joint dislocation [Recovered/Resolved]
  - Limb deformity [Not Recovered/Not Resolved]
  - Fall [Recovered/Resolved]
  - Psoriatic arthropathy [Not Recovered/Not Resolved]
  - Underdose [Not Recovered/Not Resolved]
  - Scar [Not Recovered/Not Resolved]
  - Wound [Recovered/Resolved]
  - Wound complication [Recovered/Resolved]

NARRATIVE: CASE EVENT DATE: 2014
